FAERS Safety Report 7624523-7 (Version None)
Quarter: 2011Q3

REPORT INFORMATION
  Report Type: 
  Country: None (occurrence: None)
  Receive Date: 20110720
  Receipt Date: 20110711
  Transmission Date: 20111222
  Serious: Yes (Other)
  Sender: FDA-Public Use
  Company Number: BR-US-EMD SERONO, INC.-7070260

PATIENT
  Sex: Female

DRUGS (5)
  1. BETALOR [Concomitant]
  2. REBIF [Suspect]
     Indication: RELAPSING-REMITTING MULTIPLE SCLEROSIS
     Dates: start: 20090302
  3. ASPIRIN [Concomitant]
  4. ARADOIS H [Concomitant]
  5. CARBAMAZEPINE [Concomitant]

REACTIONS (5)
  - GASTRITIS [None]
  - NAUSEA [None]
  - CHOLELITHIASIS [None]
  - INJECTION SITE PAIN [None]
  - VOMITING [None]
